FAERS Safety Report 8245258-6 (Version None)
Quarter: 2012Q1

REPORT INFORMATION
  Report Type: 
  Country: None (occurrence: None)
  Receive Date: 20120329
  Receipt Date: 20120319
  Transmission Date: 20120608
  Serious: Yes (Death)
  Sender: FDA-Public Use
  Company Number: GB-ROCHE-1050561

PATIENT
  Sex: Female

DRUGS (3)
  1. MABTHERA [Suspect]
     Indication: RHEUMATOID ARTHRITIS
     Route: 065
     Dates: start: 20020101
  2. MABTHERA [Suspect]
     Route: 065
     Dates: start: 20071221
  3. CYCLOPHOSPHAMIDE [Concomitant]
     Route: 065

REACTIONS (3)
  - PULMONARY EMBOLISM [None]
  - ATRIAL FIBRILLATION [None]
  - DIABETES MELLITUS [None]
